FAERS Safety Report 4641452-1 (Version None)
Quarter: 2005Q2

REPORT INFORMATION
  Report Type: 
  Country: None (occurrence: None)
  Receive Date: 20050420
  Receipt Date: 20050420
  Transmission Date: 20051028
  Serious: Yes (Hospitalization, Other)
  Sender: FDA-Public Use
  Company Number: None

PATIENT
  Sex: Female
  Weight: 70.3075 kg

DRUGS (1)
  1. CIPROFLOXACIN [Suspect]
     Indication: SINUSITIS
     Dosage: 2X'S A DAY
     Dates: start: 20050319, end: 20050329

REACTIONS (3)
  - ABDOMINAL PAIN UPPER [None]
  - CHROMATURIA [None]
  - MYALGIA [None]
